FAERS Safety Report 7984410-1 (Version None)
Quarter: 2011Q4

REPORT INFORMATION
  Report Type: 
  Country: None (occurrence: None)
  Receive Date: 20111216
  Receipt Date: 20111204
  Transmission Date: 20120403
  Serious: Yes (Hospitalization)
  Sender: FDA-Public Use
  Company Number: JP-ELI_LILLY_AND_COMPANY-JP201112001915

PATIENT
  Age: 55 Year
  Sex: Male

DRUGS (1)
  1. FORTEO [Suspect]
     Route: 058

REACTIONS (3)
  - BACK PAIN [None]
  - GASTROINTESTINAL DISORDER [None]
  - GAIT DISTURBANCE [None]
